FAERS Safety Report 17374651 (Version 1)
Quarter: 2020Q1

REPORT INFORMATION
  Report Type: Spontaneous
  Country: US (occurrence: US)
  Receive Date: 20200205
  Receipt Date: 20200205
  Transmission Date: 20200409
  Serious: No
  Sender: FDA-Public Use
  Company Number: US-PFIZER INC-2019356705

PATIENT
  Age: 5 Year
  Sex: Male
  Weight: 13 kg

DRUGS (1)
  1. GENOTROPIN [Suspect]
     Active Substance: SOMATROPIN
     Indication: GROWTH DISORDER
     Dosage: 0.4 MG, DAILY
     Dates: end: 201911

REACTIONS (3)
  - Drug ineffective [Unknown]
  - Product dose omission [Unknown]
  - Wrong technique in device usage process [Unknown]
